FAERS Safety Report 8470967-3 (Version None)
Quarter: 2012Q2

REPORT INFORMATION
  Report Type: 
  Country: None (occurrence: None)
  Receive Date: 20120323
  Receipt Date: 20111104
  Transmission Date: 20120825
  Serious: Yes (Other)
  Sender: FDA-Public Use
  Company Number: 163-21880-11110674

PATIENT
  Age: 69 Year
  Sex: Female
  Weight: 81.6 kg

DRUGS (1)
  1. LENALIDOMIDE [Suspect]
     Dosage: 20 MG, DAILY 3 WEEKS ON, 1 WEEK
     Dates: start: 20110607

REACTIONS (1)
  - THROMBOSIS [None]
